FAERS Safety Report 7768699-X (Version None)
Quarter: 2011Q3

REPORT INFORMATION
  Report Type: 
  Country: None (occurrence: None)
  Receive Date: 20110922
  Receipt Date: 20100810
  Transmission Date: 20111222
  Serious: Yes (Other)
  Sender: FDA-Public Use
  Company Number: US-ASTRAZENECA-2008UW01220

PATIENT
  Age: 34 Year
  Sex: Female
  Weight: 99.8 kg

DRUGS (17)
  1. PROZAC [Concomitant]
     Route: 048
     Dates: start: 20010730
  2. RISPERDAL [Concomitant]
     Indication: SCHIZOPHRENIA
     Dates: start: 20000101
  3. SEROQUEL [Suspect]
     Dosage: 25-500 MG
     Route: 048
     Dates: start: 20010714
  4. HALDOL [Concomitant]
     Route: 048
     Dates: start: 20000101
  5. RISPERDAL [Concomitant]
     Indication: DEPRESSION
     Dates: start: 20000101
  6. GEODON [Concomitant]
     Dates: start: 20080101
  7. STELAZINE [Concomitant]
     Dates: start: 19910101
  8. SEROQUEL [Suspect]
     Indication: SCHIZOPHRENIA
     Dosage: 300 MG - 900 MG
     Route: 048
     Dates: start: 20000801, end: 20070301
  9. VALIUM [Concomitant]
     Route: 048
     Dates: start: 20010730
  10. ZYPREXA [Concomitant]
     Indication: SCHIZOPHRENIA
     Dates: start: 19970101, end: 20000101
  11. SEROQUEL [Suspect]
     Dosage: 25-500 MG
     Route: 048
     Dates: start: 20010714
  12. NAVANE [Concomitant]
     Dates: start: 20010101
  13. THORAZINE [Concomitant]
     Dates: start: 19810101
  14. SEROQUEL [Suspect]
     Indication: DEPRESSION
     Dosage: 300 MG - 900 MG
     Route: 048
     Dates: start: 20000801, end: 20070301
  15. HALDOL [Concomitant]
     Route: 048
     Dates: start: 20010730
  16. ZYPREXA [Concomitant]
     Indication: DEPRESSION
     Dates: start: 19970101, end: 20000101
  17. ABILIFY [Concomitant]
     Dates: start: 20090101

REACTIONS (9)
  - ADVERSE DRUG REACTION [None]
  - BLOOD CHOLESTEROL INCREASED [None]
  - BLOOD TRIGLYCERIDES INCREASED [None]
  - GLYCOSURIA [None]
  - SUICIDE ATTEMPT [None]
  - DIABETIC COMPLICATION [None]
  - OBESITY [None]
  - HYPERLIPIDAEMIA [None]
  - TYPE 2 DIABETES MELLITUS [None]
